FAERS Safety Report 5960144-X (Version None)
Quarter: 2008Q4

REPORT INFORMATION
  Report Type: 
  Country: None (occurrence: None)
  Receive Date: 20081118
  Receipt Date: 20081118
  Transmission Date: 20090506
  Serious: Yes (Other)
  Sender: FDA-Public Use
  Company Number: None

PATIENT
  Age: 64 Year
  Sex: Female
  Weight: 65.318 kg

DRUGS (1)
  1. CARISOPRODOL [Suspect]
     Indication: PAIN
     Dosage: 2X350MG NIGHTLY PO
     Route: 048

REACTIONS (4)
  - ACTIVITIES OF DAILY LIVING IMPAIRED [None]
  - FATIGUE [None]
  - FEELING ABNORMAL [None]
  - PRODUCT QUALITY ISSUE [None]
